FAERS Safety Report 9795940 (Version 2)
Quarter: 2014Q1

REPORT INFORMATION
  Report Type: Spontaneous
  Country: FR (occurrence: FR)
  Receive Date: 20140103
  Receipt Date: 20140103
  Transmission Date: 20141002
  Serious: Yes (Other)
  Sender: FDA-Public Use
  Company Number: FR-009507513-1306FRA012985

PATIENT
  Age: 58 Year
  Sex: Female
  Weight: 51 kg

DRUGS (5)
  1. DIPROSTENE [Suspect]
     Indication: OSTEOARTHRITIS
     Dosage: 1 DF, ONCE
     Dates: start: 20130530, end: 20130530
  2. DEPAMIDE [Concomitant]
     Indication: DEPRESSION
     Dosage: 600 MG, BID
  3. HAVLANE [Concomitant]
  4. THERALENE [Concomitant]
     Indication: DEPRESSION
     Dosage: 1 DF, QPM
  5. PROTHIADEN [Concomitant]
     Indication: DEPRESSION
     Dosage: 1 DF, QD

REACTIONS (1)
  - Blood cortisol decreased [Recovered/Resolved]
